FAERS Safety Report 11822259 (Version 3)
Quarter: 2016Q1

REPORT INFORMATION
  Report Type: Spontaneous
  Country: US (occurrence: US)
  Receive Date: 20151210
  Receipt Date: 20160308
  Transmission Date: 20160525
  Serious: No
  Sender: FDA-Public Use
  Company Number: US-JNJFOC-20150911596

PATIENT
  Age: 75 Year
  Sex: Male

DRUGS (27)
  1. IMBRUVICA [Suspect]
     Active Substance: IBRUTINIB
     Indication: CHRONIC LYMPHOCYTIC LEUKAEMIA
     Route: 048
     Dates: start: 2015
  2. PREDNISONE. [Concomitant]
     Active Substance: PREDNISONE
     Indication: EYE DISORDER
  3. POTASSIUM [Concomitant]
     Active Substance: POTASSIUM
  4. FLUVIRIN NOS [Concomitant]
     Active Substance: INFLUENZA VIRUS VACCINE
  5. LOSARTAN. [Concomitant]
     Active Substance: LOSARTAN
     Indication: HYPERTENSION
     Dates: start: 2009
  6. PREDNISONE. [Concomitant]
     Active Substance: PREDNISONE
     Indication: VOGT-KOYANAGI-HARADA SYNDROME
  7. PREDNISONE. [Concomitant]
     Active Substance: PREDNISONE
     Indication: VOGT-KOYANAGI-HARADA SYNDROME
     Dates: start: 2004
  8. FLUOXETINE [Concomitant]
     Active Substance: FLUOXETINE HYDROCHLORIDE
  9. IMBRUVICA [Suspect]
     Active Substance: IBRUTINIB
     Indication: CHRONIC LYMPHOCYTIC LEUKAEMIA
     Route: 048
     Dates: start: 20150807
  10. ZOCOR [Concomitant]
     Active Substance: SIMVASTATIN
  11. PREDNISONE. [Concomitant]
     Active Substance: PREDNISONE
     Indication: VOGT-KOYANAGI-HARADA SYNDROME
  12. UBIDECARENONE [Concomitant]
     Active Substance: UBIDECARENONE
  13. VALACYCLOVIR [Concomitant]
     Active Substance: VALACYCLOVIR HYDROCHLORIDE
     Indication: HERPES ZOSTER
  14. PROTONEX [Concomitant]
     Indication: GASTROOESOPHAGEAL REFLUX DISEASE
     Dates: start: 2002
  15. PREDNISONE. [Concomitant]
     Active Substance: PREDNISONE
     Indication: CHRONIC LYMPHOCYTIC LEUKAEMIA
  16. ZINC OXIDE. [Concomitant]
     Active Substance: ZINC OXIDE
  17. PREDNISONE. [Concomitant]
     Active Substance: PREDNISONE
     Indication: CHRONIC LYMPHOCYTIC LEUKAEMIA
     Dates: start: 2004
  18. PREDNISONE. [Concomitant]
     Active Substance: PREDNISONE
     Indication: EYE DISORDER
  19. HYDROCHLOROTHIAZIDE. [Concomitant]
     Active Substance: HYDROCHLOROTHIAZIDE
  20. PREDNISONE. [Concomitant]
     Active Substance: PREDNISONE
     Indication: CHRONIC LYMPHOCYTIC LEUKAEMIA
  21. PROZAC [Concomitant]
     Active Substance: FLUOXETINE HYDROCHLORIDE
     Indication: ANXIETY
     Route: 048
     Dates: start: 2010
  22. ACYCLOVIR. [Concomitant]
     Active Substance: ACYCLOVIR
  23. TYLENOL [Concomitant]
     Active Substance: ACETAMINOPHEN
  24. PRAVASTATIN [Concomitant]
     Active Substance: PRAVASTATIN\PRAVASTATIN SODIUM
     Indication: BLOOD CHOLESTEROL ABNORMAL
     Dates: start: 2006
  25. PREDNISONE. [Concomitant]
     Active Substance: PREDNISONE
     Indication: EYE DISORDER
     Dates: start: 2004
  26. MULTIVITAMINS [Concomitant]
     Active Substance: VITAMINS
  27. PANTOPRAZOLE [Concomitant]
     Active Substance: PANTOPRAZOLE SODIUM

REACTIONS (11)
  - Dysphonia [Recovered/Resolved]
  - Gingival injury [Recovered/Resolved]
  - Stomatitis [Recovered/Resolved]
  - Headache [Recovered/Resolved]
  - Constipation [Recovered/Resolved]
  - Gingival ulceration [Recovered/Resolved]
  - Systolic hypertension [Unknown]
  - Fatigue [Unknown]
  - Palpitations [Recovered/Resolved]
  - Arthralgia [Recovered/Resolved]
  - Petechiae [Recovered/Resolved]

NARRATIVE: CASE EVENT DATE: 2015
